FAERS Safety Report 5908113-X (Version None)
Quarter: 2008Q4

REPORT INFORMATION
  Report Type: 
  Country: None (occurrence: None)
  Receive Date: 20081003
  Receipt Date: 20080923
  Transmission Date: 20090506
  Serious: Yes (Death, Hospitalization, Other)
  Sender: FDA-Public Use
  Company Number: US-PFIZER INC-2008080743

PATIENT
  Sex: Female
  Weight: 63.5 kg

DRUGS (4)
  1. REVATIO [Suspect]
     Indication: DYSPNOEA
     Dates: start: 20080101
  2. MORPHINE [Suspect]
     Dates: start: 20080901, end: 20080901
  3. WARFARIN SODIUM [Concomitant]
  4. PLAVIX [Concomitant]

REACTIONS (6)
  - ANGIOPATHY [None]
  - CARDIAC VALVE DISEASE [None]
  - DEATH [None]
  - HALLUCINATION [None]
  - PNEUMONIA [None]
  - RENAL FAILURE [None]
